FAERS Safety Report 6606627-0 (Version None)
Quarter: 2010Q1

REPORT INFORMATION
  Report Type: 
  Country: None (occurrence: None)
  Receive Date: 20100226
  Receipt Date: 20100216
  Transmission Date: 20100710
  Serious: Yes (Other)
  Sender: FDA-Public Use
  Company Number: GB-ABBOTT-10P-167-0626569-00

PATIENT
  Age: 66 Year
  Sex: Female

DRUGS (2)
  1. EPILIM TABLETS [Suspect]
     Indication: DRUG USE FOR UNKNOWN INDICATION
     Dosage: 2 GRAM DAILY
     Route: 048
  2. OLANZAPINE [Suspect]
     Indication: DRUG USE FOR UNKNOWN INDICATION

REACTIONS (4)
  - CLUMSINESS [None]
  - COORDINATION ABNORMAL [None]
  - PARKINSON'S DISEASE [None]
  - TREMOR [None]
